FAERS Safety Report 5767800-7 (Version None)
Quarter: 2008Q2

REPORT INFORMATION
  Report Type: 
  Country: None (occurrence: None)
  Receive Date: 20080612
  Receipt Date: 20080602
  Transmission Date: 20081010
  Serious: Yes (Other)
  Sender: FDA-Public Use
  Company Number: US-PFIZER INC-2008032657

PATIENT
  Sex: Female
  Weight: 91.363 kg

DRUGS (9)
  1. GLIPIZIDE [Suspect]
     Indication: DIABETES MELLITUS
     Route: 048
  2. SYNTHROID [Concomitant]
  3. ZIAC [Concomitant]
  4. LANTUS [Concomitant]
  5. CLINDAMYCIN [Concomitant]
  6. LASIX [Concomitant]
  7. QUINAPRIL [Concomitant]
  8. CLINORIL [Concomitant]
  9. ASTRIX [Concomitant]

REACTIONS (12)
  - ASTHENIA [None]
  - CHOLELITHIASIS [None]
  - CHOLESTASIS [None]
  - GALLBLADDER DISORDER [None]
  - GALLBLADDER NON-FUNCTIONING [None]
  - HEPATIC FAILURE [None]
  - HEPATOMEGALY [None]
  - JAUNDICE [None]
  - LIVER INJURY [None]
  - MALAISE [None]
  - OEDEMA PERIPHERAL [None]
  - WEIGHT DECREASED [None]
